FAERS Safety Report 7485177-6 (Version None)
Quarter: 2011Q2

REPORT INFORMATION
  Report Type: 
  Country: None (occurrence: None)
  Receive Date: 20110517
  Receipt Date: 20101207
  Transmission Date: 20111010
  Serious: Yes (Hospitalization, Disabling)
  Sender: FDA-Public Use
  Company Number: US-BAYER-201032425NA

PATIENT
  Age: 23 Year
  Sex: Female
  Weight: 54 kg

DRUGS (5)
  1. MORPHINE [Concomitant]
     Indication: PAIN
  2. YAZ [Suspect]
     Indication: PRODUCT USED FOR UNKNOWN INDICATION
     Route: 065
     Dates: start: 20080530, end: 20080716
  3. VITAMIN C [Concomitant]
     Indication: NASOPHARYNGITIS
  4. FLUCONAZOLE [Concomitant]
     Dosage: 150 MG, UNK
     Dates: start: 20080621
  5. IBUPROFEN (ADVIL) [Concomitant]
     Indication: DYSMENORRHOEA

REACTIONS (7)
  - ANXIETY [None]
  - THROMBOSIS [None]
  - PAIN [None]
  - CHEST DISCOMFORT [None]
  - ABDOMINAL DISCOMFORT [None]
  - PULMONARY EMBOLISM [None]
  - DYSPNOEA [None]
